FAERS Safety Report 5303037-3 (Version None)
Quarter: 2007Q2

REPORT INFORMATION
  Report Type: 
  Country: None (occurrence: None)
  Receive Date: 20070420
  Receipt Date: 20070315
  Transmission Date: 20071010
  Serious: Yes (Life-Threatening)
  Sender: FDA-Public Use
  Company Number: GR-AVENTIS-200713377GDDC

PATIENT
  Sex: Female

DRUGS (3)
  1. TAXOTERE [Suspect]
     Route: 042
  2. CETUXIMAB [Suspect]
     Route: 042
  3. PLATINEX [Suspect]
     Route: 042

REACTIONS (1)
  - HAEMOLYTIC URAEMIC SYNDROME [None]
